FAERS Safety Report 9803748 (Version 1)
Quarter: 2014Q1

REPORT INFORMATION
  Report Type: Spontaneous
  Country: US (occurrence: US)
  Receive Date: 20140108
  Receipt Date: 20140108
  Transmission Date: 20141002
  Serious: No
  Sender: FDA-Public Use
  Company Number: US-GLAXOSMITHKLINE-A1031993A

PATIENT
  Age: 82 Year
  Sex: Female

DRUGS (8)
  1. LOVAZA [Suspect]
     Indication: BLOOD CHOLESTEROL INCREASED
     Dosage: 2G TWICE PER DAY
     Route: 048
     Dates: start: 2012, end: 201306
  2. DIOVAN [Concomitant]
  3. TOPROL [Concomitant]
  4. HYDROCHLOROTHIAZIDE [Concomitant]
  5. LEVOTHYROXINE [Concomitant]
  6. WELCHOL [Concomitant]
  7. MULTIVITAMIN [Concomitant]
  8. PRILOSEC [Concomitant]

REACTIONS (8)
  - Skin odour abnormal [Recovered/Resolved]
  - Urine odour abnormal [Recovered/Resolved]
  - Abnormal faeces [Recovered/Resolved]
  - Dysgeusia [Recovered/Resolved]
  - Breath odour [Recovered/Resolved]
  - Dysphonia [Not Recovered/Not Resolved]
  - Off label use [Unknown]
  - Product quality issue [Unknown]
